FAERS Safety Report 20183321 (Version 7)
Quarter: 2023Q4

REPORT INFORMATION
  Report Type: Spontaneous
  Country: US (occurrence: US)
  Receive Date: 20211214
  Receipt Date: 20231113
  Transmission Date: 20240109
  Serious: Yes (Hospitalization)
  Sender: FDA-Public Use
  Company Number: US-PFIZER INC-202101587369

PATIENT
  Age: 80 Year
  Sex: Female
  Weight: 58.967 kg

DRUGS (1)
  1. ESTRING [Suspect]
     Active Substance: ESTRADIOL
     Indication: Hormone replacement therapy
     Dosage: UNK, EVERY 3 MONTHS
     Route: 067
     Dates: start: 2019

REACTIONS (8)
  - Vulvovaginal pain [Not Recovered/Not Resolved]
  - Vaginal discharge [Not Recovered/Not Resolved]
  - Skin odour abnormal [Unknown]
  - Device issue [Unknown]
  - Hypertonic bladder [Not Recovered/Not Resolved]
  - Vaginal odour [Not Recovered/Not Resolved]
  - Hernia [Not Recovered/Not Resolved]
  - Hyperhidrosis [Unknown]

NARRATIVE: CASE EVENT DATE: 20190101
